FAERS Safety Report 8076447-1 (Version None)
Quarter: 2012Q1

REPORT INFORMATION
  Report Type: 
  Country: None (occurrence: None)
  Receive Date: 20120127
  Receipt Date: 20120119
  Transmission Date: 20120608
  Serious: Yes (Hospitalization)
  Sender: FDA-Public Use
  Company Number: US-US-EMD SERONO, INC.-7108241

PATIENT
  Sex: Male

DRUGS (3)
  1. REBIF [Suspect]
     Indication: MULTIPLE SCLEROSIS
     Route: 058
     Dates: start: 20101026
  2. UNSPECIFIED MEDICATIONS [Concomitant]
  3. AMPYRA [Concomitant]

REACTIONS (4)
  - URINARY TRACT INFECTION [None]
  - INJECTION SITE ERYTHEMA [None]
  - INTESTINAL OBSTRUCTION [None]
  - ASTHENIA [None]
